FAERS Safety Report 8397502-2 (Version None)
Quarter: 2012Q2

REPORT INFORMATION
  Report Type: 
  Country: None (occurrence: None)
  Receive Date: 20120529
  Receipt Date: 20120529
  Transmission Date: 20120825
  Serious: Yes (Hospitalization)
  Sender: FDA-Public Use
  Company Number: None

PATIENT
  Age: 65 Year
  Sex: Male

DRUGS (1)
  1. ACTHAR [Suspect]
     Dosage: 80 UNITS DAILY SUBCUTANOUS
     Route: 058
     Dates: start: 20120427, end: 20120427

REACTIONS (2)
  - HEART RATE DECREASED [None]
  - BLOOD PRESSURE DECREASED [None]
